FAERS Safety Report 13338859 (Version 1)
Quarter: 2017Q1

REPORT INFORMATION
  Report Type: Spontaneous
  Country: PK (occurrence: PK)
  Receive Date: 20170315
  Receipt Date: 20170315
  Transmission Date: 20170428
  Serious: Yes (Death, Hospitalization)
  Sender: FDA-Public Use
  Company Number: PK-TURING PHARMACEUTICALS-2017TNG00016

PATIENT
  Age: 65 Year
  Sex: Male

DRUGS (1)
  1. PYRIMETHAMINE [Suspect]
     Active Substance: PYRIMETHAMINE
     Indication: ACCIDENTAL EXPOSURE TO PRODUCT
     Route: 048

REACTIONS (15)
  - Dermatitis exfoliative [None]
  - Bone marrow failure [Fatal]
  - Coronary artery occlusion [None]
  - Pulmonary congestion [None]
  - Aortic arteriosclerosis [None]
  - Hepatic congestion [None]
  - Myocardial ischaemia [Fatal]
  - Spleen congestion [None]
  - Cardio-respiratory arrest [Fatal]
  - Kidney congestion [None]
  - Toxicity to various agents [Fatal]
  - Accidental exposure to product [Fatal]
  - Product contamination [Fatal]
  - Pulmonary oedema [None]
  - Gastritis erosive [None]

NARRATIVE: CASE EVENT DATE: 20120105
